FAERS Safety Report 8021889-3 (Version None)
Quarter: 2012Q1

REPORT INFORMATION
  Report Type: 
  Country: None (occurrence: None)
  Receive Date: 20120104
  Receipt Date: 20111229
  Transmission Date: 20120608
  Serious: Yes (Hospitalization)
  Sender: FDA-Public Use
  Company Number: US-VIROPHARMA INCORPORATED-20111219CINRY2526

PATIENT
  Sex: Female

DRUGS (9)
  1. CLONIDINE [Concomitant]
     Indication: ANXIETY
     Dosage: UNKNOWN
     Route: 065
  2. WELLBUTRIN [Concomitant]
     Indication: DEPRESSION
     Route: 065
  3. CINRYZE [Suspect]
     Dates: start: 20111201
  4. SYNTHROID [Concomitant]
     Indication: HYPOTHYROIDISM
     Dosage: UNKNOWN
     Route: 065
  5. CINRYZE [Suspect]
     Indication: HEREDITARY ANGIOEDEMA
     Dates: start: 20081201
  6. LIPITOR [Concomitant]
     Indication: BLOOD CHOLESTEROL INCREASED
     Route: 065
  7. ZOMIG [Concomitant]
     Indication: MIGRAINE
     Dosage: UNKNOWN
     Route: 048
  8. SEROQUEL [Concomitant]
     Indication: ANXIETY
     Dosage: UNKNOWN
     Route: 065
  9. EFFEXOR [Concomitant]
     Indication: DEPRESSION
     Route: 065

REACTIONS (3)
  - SEPSIS [None]
  - DRUG DOSE OMISSION [None]
  - INCISION SITE BLISTER [None]
